FAERS Safety Report 11374232 (Version 1)
Quarter: 2015Q3

REPORT INFORMATION
  Report Type: Spontaneous
  Country: CN (occurrence: CN)
  Receive Date: 20150812
  Receipt Date: 20150812
  Transmission Date: 20151125
  Serious: Yes (Other)
  Sender: FDA-Public Use
  Company Number: CN-GILEAD-2015-0167270

PATIENT
  Age: 62 Year
  Sex: Female

DRUGS (1)
  1. ADEFOVIR DIPIVOXIL. [Suspect]
     Active Substance: ADEFOVIR DIPIVOXIL
     Indication: HEPATITIS B
     Dosage: UNK
     Route: 065

REACTIONS (10)
  - Metabolic acidosis [Unknown]
  - Neuropathy peripheral [Recovered/Resolved]
  - Muscular weakness [Recovered/Resolved]
  - Renal tubular acidosis [Unknown]
  - Fanconi syndrome acquired [Recovered/Resolved]
  - Hypokalaemia [Recovered/Resolved]
  - Osteoporosis [Recovered/Resolved]
  - Hypophosphataemia [Recovered/Resolved]
  - Glomerular filtration rate abnormal [Recovering/Resolving]
  - Bone pain [Recovered/Resolved]
